FAERS Safety Report 4614325-8 (Version None)
Quarter: 2005Q1

REPORT INFORMATION
  Report Type: 
  Country: None (occurrence: None)
  Receive Date: 20050315
  Receipt Date: 20050204
  Transmission Date: 20050727
  Serious: Yes (Other)
  Sender: FDA-Public Use
  Company Number: ENT 2005-0019(1)

PATIENT
  Age: 74 Year
  Sex: Female

DRUGS (3)
  1. COMTESS (ENTACAPONE) [Suspect]
     Indication: PARKINSON'S DISEASE
     Dosage: 800 MG (200 MG, 4 IN 1 D) ORAL
     Route: 048
     Dates: start: 20041101, end: 20050201
  2. MADOPARK QUICK MITE [Suspect]
     Indication: PARKINSON'S DISEASE
     Dosage: 4 TABLETS ORAL
     Route: 048
  3. MADOPARK DEPOT [Suspect]
     Indication: PARKINSON'S DISEASE
     Dosage: 1 TABLET FOR THE NIGHT ORAL
     Route: 048

REACTIONS (1)
  - COLITIS [None]
